FAERS Safety Report 14260470 (Version 1)
Quarter: 2017Q4

REPORT INFORMATION
  Report Type: Spontaneous
  Country: US (occurrence: US)
  Receive Date: 20171207
  Receipt Date: 20171207
  Transmission Date: 20180321
  Serious: No
  Sender: FDA-Public Use
  Company Number: US-AMNEAL PHARMACEUTICALS-2017AMN01023

PATIENT
  Age: 54 Year
  Sex: Female
  Weight: 63.49 kg

DRUGS (1)
  1. ESTRADIOL. [Suspect]
     Active Substance: ESTRADIOL
     Indication: ATROPHIC VULVOVAGINITIS
     Dosage: 1 TABLETS, 2X/WEEK
     Route: 067
     Dates: start: 20171113, end: 20171122

REACTIONS (4)
  - Vulvovaginal burning sensation [Recovering/Resolving]
  - Vulvovaginal discomfort [Recovering/Resolving]
  - Hypersensitivity [Recovering/Resolving]
  - Vulvovaginal pain [Recovering/Resolving]

NARRATIVE: CASE EVENT DATE: 201711
